FAERS Safety Report 6054381-6 (Version None)
Quarter: 2009Q1

REPORT INFORMATION
  Report Type: 
  Country: None (occurrence: None)
  Receive Date: 20090127
  Receipt Date: 20090117
  Transmission Date: 20090719
  Serious: Yes (Hospitalization, Other)
  Sender: FDA-Public Use
  Company Number: US-PFIZER INC-2008094087

PATIENT
  Sex: Male
  Weight: 111.1 kg

DRUGS (6)
  1. CELEBREX [Suspect]
     Indication: ARTHRITIS
     Route: 048
     Dates: end: 20080101
  2. ATENOLOL [Concomitant]
     Dosage: 25 MG, UNK
     Route: 048
  3. PLAQUENIL [Concomitant]
     Dosage: 200 MG, 1X/DAY
     Route: 048
  4. TRICOR [Concomitant]
     Dosage: 160 MG, 1X/DAY
     Route: 048
  5. PRAVACHOL [Concomitant]
     Dosage: 80 MG, 1X/DAY
     Route: 048
  6. NEXIUM [Concomitant]
     Dosage: 40 MG, 1X/DAY
     Route: 048

REACTIONS (7)
  - COMPARTMENT SYNDROME [None]
  - HAEMATOMA [None]
  - NEURALGIA [None]
  - PERIPHERAL ISCHAEMIA [None]
  - POSTOPERATIVE WOUND INFECTION [None]
  - THROMBOSIS [None]
  - VASCULAR OCCLUSION [None]
